FAERS Safety Report 15894059 (Version 7)
Quarter: 2020Q3

REPORT INFORMATION
  Report Type: Spontaneous
  Country: JP (occurrence: JP)
  Receive Date: 20190131
  Receipt Date: 20200811
  Transmission Date: 20201102
  Serious: Yes (Hospitalization)
  Sender: FDA-Public Use
  Company Number: JP-ABBVIE-18K-087-2380083-00

PATIENT
  Age: 65 Year
  Sex: Female

DRUGS (4)
  1. DUODOPA [Suspect]
     Active Substance: CARBIDOPA\LEVODOPA
     Dosage: MD: 20 ML CD: 4.5 ML ED: 1.7 ML
     Route: 050
  2. CARBIDOPA HYDRATE LEVODOPA MIXTURE [Concomitant]
     Indication: PARKINSON^S DISEASE
     Route: 048
  3. DUODOPA [Suspect]
     Active Substance: CARBIDOPA\LEVODOPA
     Dosage: MD 15ML CD 4.6 ML X 16 HOURS ED 1.7 ML X ONE TO THREE TIMES DAILY
     Route: 050
     Dates: start: 20170622
  4. DUODOPA [Suspect]
     Active Substance: CARBIDOPA\LEVODOPA
     Indication: PARKINSON^S DISEASE
     Route: 050
     Dates: start: 20170311, end: 2017

REACTIONS (7)
  - Inguinal hernia [Unknown]
  - Gait inability [Unknown]
  - Feeling hot [Unknown]
  - Malaise [Unknown]
  - Pain [Unknown]
  - Dyskinesia [Not Recovered/Not Resolved]
  - Product prescribing error [Unknown]

NARRATIVE: CASE EVENT DATE: 20180531
